FAERS Safety Report 25586896 (Version 2)
Quarter: 2025Q4

REPORT INFORMATION
  Report Type: Spontaneous
  Country: US (occurrence: US)
  Receive Date: 20250721
  Receipt Date: 20251021
  Transmission Date: 20260118
  Serious: No
  Sender: Phathom Pharmaceuticals
  Company Number: US-PHATHOM PHARMACEUTICALS INC.-2025PHT01139

PATIENT
  Age: 66 Year
  Sex: Female

DRUGS (10)
  1. VOQUEZNA [Suspect]
     Active Substance: VONOPRAZAN FUMARATE
     Indication: Barrett^s oesophagus
     Dosage: UNK
     Route: 048
  2. VOQUEZNA [Suspect]
     Active Substance: VONOPRAZAN FUMARATE
     Indication: Gastrooesophageal reflux disease
     Dosage: 20 MG, 1X/DAY
     Route: 048
     Dates: start: 20250519
  3. PEPCID [Concomitant]
     Active Substance: FAMOTIDINE
  4. TYLENOL [Concomitant]
     Active Substance: ACETAMINOPHEN
  5. ZOFRAN [Concomitant]
     Active Substance: ONDANSETRON HYDROCHLORIDE
  6. PROLIA [Concomitant]
     Active Substance: DENOSUMAB
  7. KLONOPIN [Concomitant]
     Active Substance: CLONAZEPAM
  8. HYDROXYZINE [Concomitant]
     Active Substance: HYDROXYZINE HYDROCHLORIDE
  9. DULOXETINE [Concomitant]
     Active Substance: DULOXETINE
  10. ATORVASTATIN [Concomitant]
     Active Substance: ATORVASTATIN

REACTIONS (6)
  - Nausea [Unknown]
  - Diarrhoea [Unknown]
  - Abdominal distension [Unknown]
  - Weight increased [Unknown]
  - Drug ineffective [Not Recovered/Not Resolved]
  - Off label use [Recovered/Resolved]

NARRATIVE: CASE EVENT DATE: 20250725
